FAERS Safety Report 10255596 (Version 1)
Quarter: 2014Q2

REPORT INFORMATION
  Report Type: Spontaneous
  Country: GB (occurrence: None)
  Receive Date: 20140620
  Receipt Date: 20140620
  Transmission Date: 20141212
  Serious: Yes (Other)
  Sender: FDA-Public Use
  Company Number: 2014-001788

PATIENT
  Age: 61 Year
  Sex: Female
  Weight: 55.3 kg

DRUGS (4)
  1. ACTONEL [Suspect]
     Indication: OSTEOPOROSIS
     Route: 048
     Dates: start: 2010, end: 2012
  2. ADCAL D3 (CALCIUM CARBONATE, COLECALCIFEROL) [Concomitant]
  3. OILATUM (PARAFFIN, LIQUID) [Concomitant]
  4. OMEPRAZOL (OMEPRAZOLE) [Concomitant]

REACTIONS (5)
  - Rosacea [None]
  - Pruritus [None]
  - Pain of skin [None]
  - Papule [None]
  - Photosensitivity reaction [None]
